FAERS Safety Report 14704249 (Version 1)
Quarter: 2018Q2

REPORT INFORMATION
  Report Type: Spontaneous
  Country: US (occurrence: US)
  Receive Date: 20180402
  Receipt Date: 20180402
  Transmission Date: 20180711
  Serious: No
  Sender: FDA-Public Use
  Company Number: US-ALLERGAN-1730241US

PATIENT
  Sex: Male
  Weight: 74.38 kg

DRUGS (3)
  1. ASACOL [Suspect]
     Active Substance: MESALAMINE
     Indication: COLITIS
     Dosage: 4 DF, QID
     Route: 048
     Dates: start: 2016
  2. ASACOL [Suspect]
     Active Substance: MESALAMINE
     Dosage: 3 DF, QID
     Route: 048
  3. CARDIZEM [Concomitant]
     Active Substance: DILTIAZEM HYDROCHLORIDE
     Indication: BLOOD PRESSURE FLUCTUATION
     Route: 065

REACTIONS (3)
  - Muscular weakness [Not Recovered/Not Resolved]
  - Malaise [Not Recovered/Not Resolved]
  - Lumbar spinal stenosis [Not Recovered/Not Resolved]

NARRATIVE: CASE EVENT DATE: 2016
